FAERS Safety Report 10090707 (Version 1)
Quarter: 2014Q2

REPORT INFORMATION
  Report Type: Spontaneous
  Country: MX (occurrence: MX)
  Receive Date: 20140421
  Receipt Date: 20140421
  Transmission Date: 20141212
  Serious: Yes (Hospitalization, Other)
  Sender: FDA-Public Use
  Company Number: MX-PFIZER INC-2014108153

PATIENT
  Age: 74 Year
  Sex: Female
  Weight: 57 kg

DRUGS (10)
  1. DETRUSITOL SR [Suspect]
     Indication: HYPERTONIC BLADDER
     Dosage: 4 MG, 1X/DAY
     Route: 048
     Dates: start: 2010
  2. PREMARIN CREMA V [Suspect]
     Indication: MENOPAUSE
     Dosage: 1/4 DF, DAILY
     Route: 067
     Dates: start: 2009
  3. PREMARIN CREMA V [Suspect]
     Indication: VULVOVAGINAL DRYNESS
  4. PREMARIN CREMA V [Suspect]
     Indication: ATROPHY
  5. PIRIMIR [Concomitant]
     Indication: CYSTITIS
     Dosage: 1 DF, 2X/DAY
     Route: 048
     Dates: start: 2005
  6. ATENOLOL [Concomitant]
     Indication: HYPERTENSION
     Dosage: 1/4 DF OF 25 MG, DAILY
     Dates: start: 2004
  7. NEURONTIN [Concomitant]
     Indication: DIABETIC NEUROPATHY
     Dosage: 1 DF, DAILY
     Route: 048
     Dates: start: 201402, end: 201403
  8. AMLODIPINE [Concomitant]
     Indication: HYPERTENSION
     Dosage: 1 DF, DAILY
     Route: 048
  9. SUFREXAL [Concomitant]
     Indication: VAGINAL EROSION
     Dosage: UNK
     Dates: start: 201404
  10. CLONAZEPAM [Concomitant]
     Indication: ANXIETY
     Dosage: 6 GTT, DAILY
     Dates: start: 201312

REACTIONS (9)
  - Fall [Unknown]
  - Suicidal ideation [Unknown]
  - Urethral pain [Not Recovered/Not Resolved]
  - Urethritis noninfective [Not Recovered/Not Resolved]
  - Pollakiuria [Not Recovered/Not Resolved]
  - Decreased appetite [Not Recovered/Not Resolved]
  - Vulvovaginal dryness [Unknown]
  - Panic attack [Unknown]
  - Anxiety [Unknown]
